FAERS Safety Report 18772038 (Version 2)
Quarter: 2022Q2

REPORT INFORMATION
  Report Type: Spontaneous
  Country: US (occurrence: US)
  Receive Date: 20210122
  Receipt Date: 20220518
  Transmission Date: 20220721
  Serious: No
  Sender: FDA-Public Use
  Company Number: US-PCCINC-2020-PEL-000621

PATIENT

DRUGS (2)
  1. GABLOFEN [Suspect]
     Active Substance: BACLOFEN
     Indication: Muscle spasticity
     Dosage: 150 MICROGRAM PER DAY
     Route: 037
  2. GABLOFEN [Suspect]
     Active Substance: BACLOFEN
     Dosage: 161 MICROGRAM PER DAY
     Route: 037

REACTIONS (3)
  - Muscle rigidity [Recovered/Resolved]
  - Therapy partial responder [Recovered/Resolved]
  - Headache [Recovered/Resolved]
